FAERS Safety Report 6613473-0 (Version None)
Quarter: 2010Q1

REPORT INFORMATION
  Report Type: 
  Country: None (occurrence: None)
  Receive Date: 20100225
  Receipt Date: 20100217
  Transmission Date: 20100710
  Serious: Yes (Hospitalization)
  Sender: FDA-Public Use
  Company Number: 09-000825

PATIENT
  Age: 76 Year
  Sex: Female

DRUGS (3)
  1. TACLONEX [Suspect]
     Dosage: TOPICAL
     Route: 061
     Dates: start: 20090213, end: 20090309
  2. LAMISIL [Suspect]
     Dosage: PER ORAL
     Route: 048
     Dates: start: 20090213, end: 20090309
  3. DERMOVAL (CLOBETASOL PROPIONATE) [Concomitant]

REACTIONS (4)
  - CHILLS [None]
  - PUSTULAR PSORIASIS [None]
  - PYREXIA [None]
  - XEROSIS [None]
